FAERS Safety Report 5237960-5 (Version None)
Quarter: 2007Q1

REPORT INFORMATION
  Report Type: 
  Country: None (occurrence: None)
  Receive Date: 20070209
  Receipt Date: 20070201
  Transmission Date: 20070707
  Serious: Yes (Other)
  Sender: FDA-Public Use
  Company Number: 2007SP002032

PATIENT
  Sex: Female

DRUGS (1)
  1. TEMODAL [Suspect]
     Indication: NEOPLASM MALIGNANT
     Dosage: PO
     Route: 048

REACTIONS (3)
  - COGNITIVE DISORDER [None]
  - CONDITION AGGRAVATED [None]
  - DEAFNESS [None]
